FAERS Safety Report 25586069 (Version 1)
Quarter: 2025Q3

REPORT INFORMATION
  Report Type: Spontaneous
  Country: CN (occurrence: CN)
  Receive Date: 20250721
  Receipt Date: 20250721
  Transmission Date: 20251020
  Serious: Yes (Other)
  Sender: PFIZER
  Company Number: CN-PFIZER INC-PV202500086291

PATIENT
  Age: 71 Year
  Sex: Male
  Weight: 62 kg

DRUGS (1)
  1. INLYTA [Suspect]
     Active Substance: AXITINIB
     Indication: Renal cancer
     Dosage: 1 DF, 2X/DAY
     Route: 048
     Dates: start: 20250625, end: 20250708

REACTIONS (6)
  - Anaphylactoid reaction [Recovered/Resolved]
  - Hypertension [Recovering/Resolving]
  - Headache [Unknown]
  - Dizziness [Unknown]
  - Vision blurred [Unknown]
  - Palpitations [Unknown]

NARRATIVE: CASE EVENT DATE: 20250708
